FAERS Safety Report 5805378-X (Version None)
Quarter: 2008Q3

REPORT INFORMATION
  Report Type: 
  Country: None (occurrence: None)
  Receive Date: 20080708
  Receipt Date: 20080708
  Transmission Date: 20090109
  Serious: Yes (Other)
  Sender: FDA-Public Use
  Company Number: None

PATIENT
  Age: 44 Year
  Sex: Female

DRUGS (5)
  1. VANCOMYCIN [Suspect]
     Indication: OSTEOMYELITIS
     Dosage: 1000MG Q12 IV
     Route: 042
     Dates: start: 20080425, end: 20080609
  2. VANCOMYCIN [Suspect]
  3. VANCOMYCIN [Suspect]
  4. VANCOMYCIN [Suspect]
  5. VANCOMYCIN [Suspect]

REACTIONS (4)
  - CHILLS [None]
  - FEELING ABNORMAL [None]
  - NIGHT SWEATS [None]
  - PAIN [None]
